FAERS Safety Report 23363764 (Version 2)
Quarter: 2024Q1

REPORT INFORMATION
  Report Type: Report from Study
  Country: TH (occurrence: None)
  Receive Date: 20240103
  Receipt Date: 20240110
  Transmission Date: 20240410
  Serious: Yes (Hospitalization, Other)
  Sender: FDA-Public Use
  Company Number: 2023A295930

PATIENT
  Age: 20256 Day
  Sex: Female

DRUGS (9)
  1. TAGRISSO [Suspect]
     Active Substance: OSIMERTINIB
     Indication: Non-small cell lung cancer metastatic
     Route: 048
     Dates: start: 20200814, end: 2023
  2. METHADONE [Concomitant]
     Active Substance: METHADONE HYDROCHLORIDE
     Dosage: 3.0MG UNKNOWN
  3. METHADONE [Concomitant]
     Active Substance: METHADONE HYDROCHLORIDE
     Dosage: 4.0MG UNKNOWN
  4. METHADONE [Concomitant]
     Active Substance: METHADONE HYDROCHLORIDE
     Dosage: 5.0MG UNKNOWN
  5. ULTRACET [Concomitant]
     Active Substance: ACETAMINOPHEN\TRAMADOL HYDROCHLORIDE
     Dosage: EVERY 6 HOURS NOT MORE THAN 5 TABLETS PER DAY1.0DF AS REQUIRED
     Route: 048
  6. SENOKOT [Concomitant]
     Active Substance: SENNOSIDES
     Dosage: 3-4 TABLETS EVERY DAY
     Route: 048
  7. MILK OF MAGNESIA [Concomitant]
     Active Substance: MAGNESIUM HYDROXIDE
     Route: 048
  8. LYRICA [Concomitant]
     Active Substance: PREGABALIN
  9. OXYCONTIN [Concomitant]
     Active Substance: OXYCODONE HYDROCHLORIDE
     Dosage: 10 EVERY 12 HOURS

REACTIONS (12)
  - Drug resistance [Unknown]
  - Lung consolidation [Unknown]
  - Chest pain [Unknown]
  - Pain [Not Recovered/Not Resolved]
  - Urinary retention [Unknown]
  - Pleural effusion [Recovering/Resolving]
  - Muscular weakness [Unknown]
  - Carcinoembryonic antigen increased [Unknown]
  - Non-small cell lung cancer metastatic [Not Recovered/Not Resolved]
  - Malignant neoplasm progression [Not Recovered/Not Resolved]
  - Spinal cord compression [Unknown]
  - Thoracic vertebral fracture [Unknown]

NARRATIVE: CASE EVENT DATE: 20210510
